FAERS Safety Report 9331953 (Version 1)
Quarter: 2013Q2

REPORT INFORMATION
  Report Type: Spontaneous
  Country: US (occurrence: US)
  Receive Date: 20130605
  Receipt Date: 20130605
  Transmission Date: 20140414
  Serious: Yes (Other)
  Sender: FDA-Public Use
  Company Number: US-BAUSCH-BL-2013-003271

PATIENT
  Age: 72 Year
  Sex: Male

DRUGS (7)
  1. PILOCARPINE HYDROCHLORIDE OPHTHALMIC SOLUTION USP 4% [Suspect]
     Indication: GLAUCOMA
     Dosage: 1 DROP; AT BEDTIME; RIGHT EYE
     Route: 047
     Dates: end: 201303
  2. PILOCARPINE HYDROCHLORIDE OPHTHALMIC SOLUTION USP 4% [Suspect]
     Dosage: 1 DROP; TWICE A DAY; RIGHT EYE
     Route: 047
     Dates: start: 201303, end: 201304
  3. PILOCARPINE HYDROCHLORIDE OPHTHALMIC SOLUTION USP 4% [Suspect]
     Dosage: 1 DROP; THREE TIMES A DAY; RIGHT EYE
     Route: 047
     Dates: start: 201304
  4. BRIMONIDINE TARTRATE [Concomitant]
     Indication: GLAUCOMA
     Dosage: 1 DROP; THREE TIMES A DAY; RIGHT EYE
     Route: 047
     Dates: start: 2009
  5. TIMOLOL MALEATE/DORZOLAMIDE HYDROCHLORIDE [Concomitant]
     Indication: GLAUCOMA
     Dosage: 1 DROP; TWICE A DAY; RIGHT EYE
     Route: 047
     Dates: start: 2009
  6. BIMATOPROST [Concomitant]
     Indication: GLAUCOMA
     Dosage: 1 DROP; AT BEDTIME; RIGHT EYE
     Route: 047
     Dates: start: 2009
  7. PREDNISOLONE ACETATE [Concomitant]
     Indication: GLAUCOMA
     Dosage: 1 DROP; TWICE A DAY; OPHTHALMIC
     Route: 047
     Dates: start: 2009

REACTIONS (3)
  - Intraocular pressure increased [Recovered/Resolved]
  - Drug dispensing error [Unknown]
  - Expired drug administered [Unknown]
